FAERS Safety Report 25552365 (Version 1)
Quarter: 2025Q3

REPORT INFORMATION
  Report Type: Spontaneous
  Country: GB (occurrence: GB)
  Receive Date: 20250715
  Receipt Date: 20250715
  Transmission Date: 20251020
  Serious: Yes (Hospitalization, Other)
  Sender: NOVO NORDISK
  Company Number: None

PATIENT
  Age: 41 Year
  Sex: Female
  Weight: 85 kg

DRUGS (1)
  1. WEGOVY [Suspect]
     Active Substance: SEMAGLUTIDE
     Indication: Weight control
     Dosage: 2.4 MG, QW
     Dates: start: 20241219, end: 20250415

REACTIONS (7)
  - Abnormal loss of weight [Recovering/Resolving]
  - Hypokalaemia [Recovering/Resolving]
  - Palpitations [Recovering/Resolving]
  - Decreased appetite [Recovering/Resolving]
  - Vomiting [Recovered/Resolved]
  - Abdominal pain [Recovered/Resolved]
  - Diarrhoea [Recovered/Resolved with Sequelae]

NARRATIVE: CASE EVENT DATE: 20250421
